FAERS Safety Report 4489634-6 (Version None)
Quarter: 2004Q4

REPORT INFORMATION
  Report Type: 
  Country: None (occurrence: None)
  Receive Date: 20041026
  Receipt Date: 20041020
  Transmission Date: 20050328
  Serious: Yes (Death, Other)
  Sender: FDA-Public Use
  Company Number: TCI2004A03921

PATIENT
  Age: 64 Year
  Sex: Male

DRUGS (13)
  1. LANSOPRAZOLE [Suspect]
     Indication: GASTROINTESTINAL MUCOSAL DISORDER
     Dosage: 15 MG (15 MG, 1 IN 1 D) PER ORAL
     Route: 048
     Dates: start: 20040901, end: 20040905
  2. LANSOPRAZOLE [Suspect]
     Indication: PROPHYLAXIS
     Dosage: 15 MG (15 MG, 1 IN 1 D) PER ORAL
     Route: 048
     Dates: start: 20040901, end: 20040905
  3. DEPALENE       (VALPROATE SODIUM) (SYRUP) [Concomitant]
  4. ALLOID G  (SODIUM ALGINATE) [Concomitant]
  5. BIOFERMIN                  (BIOFERMIN) [Concomitant]
  6. RACOL    (PARENTERAL NUTRITION 9 ) [Concomitant]
  7. OMEPRAZOLE [Concomitant]
  8. AMINOFLUID              (AMINOFLUID) (INJECTION) [Concomitant]
  9. NEOLAMIN                (NEOLAMIN 3B INJ.) (INJECTION) [Concomitant]
  10. PRIMPERAN                 (METOCLOPRAMIDE) INJECTION) [Concomitant]
  11. RINDERON                     (BETAMETHASONE) (INJECTION) [Concomitant]
  12. GLYCEOL                      (GLYCEOL INJECTION) [Concomitant]
  13. ACORBIC ACID             (ASCORBIC ACID) (INJECTION) [Concomitant]

REACTIONS (4)
  - BLOOD PRESSURE DECREASED [None]
  - DISSEMINATED INTRAVASCULAR COAGULATION [None]
  - METABOLIC ACIDOSIS [None]
  - SEPSIS [None]
